FAERS Safety Report 22341008 (Version 1)
Quarter: 2023Q2

REPORT INFORMATION
  Report Type: Spontaneous
  Country: GB (occurrence: GB)
  Receive Date: 20230518
  Receipt Date: 20230518
  Transmission Date: 20230722
  Serious: Yes (Other)
  Sender: FDA-Public Use
  Company Number: GB-TEVA-2023-GB-2887977

PATIENT
  Age: 32 Year
  Sex: Female

DRUGS (2)
  1. FINGOLIMOD [Suspect]
     Active Substance: FINGOLIMOD
     Indication: Relapsing-remitting multiple sclerosis
     Route: 065
  2. FINGOLIMOD [Suspect]
     Active Substance: FINGOLIMOD
     Dosage: DOSAGE WAS REDUCED TO ALTERNATE DAYS
     Route: 065
     Dates: end: 201505

REACTIONS (2)
  - Lymphopenia [Recovered/Resolved]
  - Rebound effect [Unknown]

NARRATIVE: CASE EVENT DATE: 20150101
